FAERS Safety Report 6976167-8 (Version None)
Quarter: 2010Q3

REPORT INFORMATION
  Report Type: 
  Country: None (occurrence: None)
  Receive Date: 20100910
  Receipt Date: 20100901
  Transmission Date: 20110219
  Serious: Yes (Hospitalization)
  Sender: FDA-Public Use
  Company Number: CH-ASTRAZENECA-2010SE41740

PATIENT
  Age: 18 Year
  Sex: Male

DRUGS (6)
  1. SEROQUEL XR [Suspect]
     Indication: ACUTE PSYCHOSIS
     Route: 048
     Dates: start: 20091113
  2. SEROQUEL XR [Suspect]
     Route: 048
     Dates: start: 20091228
  3. SEROQUEL XR [Suspect]
     Route: 048
     Dates: start: 20100108
  4. SEROQUEL XR [Suspect]
     Route: 048
     Dates: start: 20100111
  5. SEROQUEL XR [Suspect]
     Route: 048
     Dates: start: 20100302, end: 20100306
  6. SEROQUEL XR [Suspect]
     Route: 048
     Dates: start: 20100308, end: 20100310

REACTIONS (8)
  - ANXIETY [None]
  - BLOOD CREATINE PHOSPHOKINASE INCREASED [None]
  - DRUG WITHDRAWAL HEADACHE [None]
  - DRUG WITHDRAWAL SYNDROME [None]
  - INFLUENZA LIKE ILLNESS [None]
  - MYALGIA [None]
  - NAUSEA [None]
  - TREMOR [None]
